FAERS Safety Report 10019347 (Version 1)
Quarter: 2014Q1

REPORT INFORMATION
  Report Type: Report from Study
  Country: NL (occurrence: NL)
  Receive Date: 20140318
  Receipt Date: 20140318
  Transmission Date: 20141002
  Serious: Yes (Hospitalization)
  Sender: FDA-Public Use
  Company Number: US-ASTRAZENECA-2014SE17538

PATIENT
  Age: 9 Month
  Sex: Male

DRUGS (3)
  1. SYNAGIS [Suspect]
     Indication: BRONCHOPULMONARY DYSPLASIA
     Route: 030
     Dates: start: 20131209
  2. SYNAGIS [Suspect]
     Indication: BRONCHOPULMONARY DYSPLASIA
     Route: 030
     Dates: start: 20140106
  3. SYNAGIS [Suspect]
     Indication: BRONCHOPULMONARY DYSPLASIA
     Route: 030
     Dates: start: 20140203

REACTIONS (5)
  - Lung disorder [Not Recovered/Not Resolved]
  - Pyrexia [Unknown]
  - Respiratory syncytial virus infection [Unknown]
  - Respiratory syncytial virus test positive [Not Recovered/Not Resolved]
  - Drug ineffective [Unknown]
